FAERS Safety Report 14572728 (Version 1)
Quarter: 2018Q1

REPORT INFORMATION
  Report Type: Spontaneous
  Country: US (occurrence: US)
  Receive Date: 20180221
  Receipt Date: 20180221
  Transmission Date: 20180509
  Serious: Yes (Life-Threatening, Hospitalization)
  Sender: FDA-Public Use
  Company Number: None

PATIENT
  Age: 52 Year
  Sex: Male
  Weight: 51 kg

DRUGS (10)
  1. DENOSUMAB [Concomitant]
     Active Substance: DENOSUMAB
  2. CETIRIZINE [Concomitant]
     Active Substance: CETIRIZINE HYDROCHLORIDE
  3. ALBUTEROL NEBULIZER SOLUTION [Concomitant]
     Active Substance: ALBUTEROL
  4. VANCOMYCIN IV [Concomitant]
     Active Substance: VANCOMYCIN HYDROCHLORIDE
  5. BUDESONIDE NEBULIZED SUSPENSION [Concomitant]
  6. LANSOPRAZOLE. [Concomitant]
     Active Substance: LANSOPRAZOLE
  7. KEPPRA [Concomitant]
     Active Substance: LEVETIRACETAM
  8. MONTELUKAST [Concomitant]
     Active Substance: MONTELUKAST SODIUM
  9. LEVOFLOXACIN IV [Suspect]
     Active Substance: LEVOFLOXACIN
     Indication: PNEUMONIA
     Route: 041
     Dates: start: 20171218, end: 20171226
  10. BACLOFEN. [Concomitant]
     Active Substance: BACLOFEN

REACTIONS (3)
  - Drug eruption [None]
  - Rash [None]
  - Stevens-Johnson syndrome [None]

NARRATIVE: CASE EVENT DATE: 20171225
